FAERS Safety Report 7184532-1 (Version None)
Quarter: 2010Q4

REPORT INFORMATION
  Report Type: 
  Country: None (occurrence: None)
  Receive Date: 20101222
  Receipt Date: 20101215
  Transmission Date: 20110411
  Serious: Yes (Hospitalization)
  Sender: FDA-Public Use
  Company Number: NL-ACTELION-A-CH2010-42744

PATIENT
  Sex: Female

DRUGS (5)
  1. TRACLEER [Suspect]
     Indication: SKIN ULCER
     Dosage: 125 MG, BID
     Route: 048
  2. TRACLEER [Suspect]
     Dosage: 62.5 MG, BID
     Route: 048
     Dates: start: 20100501
  3. ASCAL [Concomitant]
  4. ENALAPRIL MALEATE [Concomitant]
  5. TRAMADOL [Concomitant]

REACTIONS (2)
  - AMPUTATION [None]
  - DRUG INEFFECTIVE [None]
